FAERS Safety Report 6869540-X (Version None)
Quarter: 2010Q3

REPORT INFORMATION
  Report Type: 
  Country: None (occurrence: None)
  Receive Date: 20100721
  Receipt Date: 20100709
  Transmission Date: 20110219
  Serious: Yes (Hospitalization)
  Sender: FDA-Public Use
  Company Number: 1000014010

PATIENT
  Age: 33 Year
  Sex: Male

DRUGS (7)
  1. PROPRANOLOL HYDROCHLORIDE [Suspect]
     Indication: UNEVALUABLE EVENT
     Dates: start: 20080827
  2. METHADONE HCL [Suspect]
     Dosage: 2.5 MG (2.5,1 IN 1 D)
     Dates: end: 20080811
  3. METHADONE HCL [Suspect]
     Dosage: 2.5 MG (2.5,1 IN 1 D)
     Dates: start: 20080407
  4. CLONIDINE [Suspect]
     Dates: start: 20080827
  5. DEXTROMETHORPHAN [Suspect]
     Dates: start: 20080827
  6. SLEEPING PILLS (NOS) [Suspect]
     Dates: start: 20080827
  7. ANTIHISTAMINES (NOS) [Suspect]
     Dates: start: 20080827

REACTIONS (3)
  - INSOMNIA [None]
  - OVERDOSE [None]
  - SOMNOLENCE [None]
